FAERS Safety Report 10249752 (Version 1)
Quarter: 2014Q2

REPORT INFORMATION
  Report Type: Spontaneous
  Country: JP (occurrence: JP)
  Receive Date: 20140620
  Receipt Date: 20140620
  Transmission Date: 20141212
  Serious: Yes (Hospitalization)
  Sender: FDA-Public Use
  Company Number: PHHY2014JP076224

PATIENT
  Age: 65 Year
  Sex: Male

DRUGS (5)
  1. DIOVAN [Suspect]
     Dosage: UNK UKN, UNK
     Route: 048
  2. NORVASC [Concomitant]
     Dosage: UNK UKN, UNK
     Route: 048
  3. ADALAT [Concomitant]
     Dosage: UNK UKN, PRN
     Route: 048
     Dates: end: 2013
  4. BLOPRESS [Concomitant]
     Dosage: UNK UKN, UNK
     Route: 048
  5. ALDOMET [Concomitant]
     Dosage: UNK UKN, UNK
     Route: 048

REACTIONS (6)
  - Heart rate increased [Unknown]
  - Dysarthria [Unknown]
  - Fall [Unknown]
  - Somnolence [Unknown]
  - Blood pressure increased [Unknown]
  - Drug ineffective [Unknown]
